FAERS Safety Report 13947324 (Version 2)
Quarter: 2017Q3

REPORT INFORMATION
  Report Type: Spontaneous
  Country: US (occurrence: US)
  Receive Date: 20170908
  Receipt Date: 20170913
  Transmission Date: 20171128
  Serious: Yes (Life-Threatening, Hospitalization, Disabling, Other)
  Sender: FDA-Public Use
  Company Number: US-ALVOGEN-2017-ALVOGEN-093403

PATIENT
  Sex: Male
  Weight: 79.38 kg

DRUGS (5)
  1. PULMICORT FLEXHALER [Suspect]
     Active Substance: BUDESONIDE
     Indication: ASTHMA
     Route: 055
  2. NEXIUM [Suspect]
     Active Substance: ESOMEPRAZOLE MAGNESIUM
     Indication: PRODUCT USED FOR UNKNOWN INDICATION
     Route: 048
  3. LISINOPRIL. [Suspect]
     Active Substance: LISINOPRIL
     Indication: CARDIAC DISORDER
     Route: 048
     Dates: start: 2011
  4. COMBIVENT [Concomitant]
     Active Substance: ALBUTEROL SULFATE\IPRATROPIUM BROMIDE
  5. PULMICORT FLEXHALER [Suspect]
     Active Substance: BUDESONIDE
     Indication: ASTHMA
     Route: 055

REACTIONS (18)
  - Depression suicidal [Unknown]
  - Depression [Unknown]
  - Retinal detachment [Unknown]
  - Dizziness [Unknown]
  - Pneumothorax [Unknown]
  - Haemorrhage [Unknown]
  - Hypotension [Unknown]
  - Asthma [Recovered/Resolved]
  - Dyspepsia [Unknown]
  - Weight decreased [Unknown]
  - Blood count abnormal [Unknown]
  - Cataract [Unknown]
  - Coronary artery occlusion [Unknown]
  - Chest discomfort [Unknown]
  - Arteriospasm coronary [Unknown]
  - Post procedural haemorrhage [Unknown]
  - Eye infection [Unknown]
  - Heart rate decreased [Unknown]
